FAERS Safety Report 9846246 (Version 1)
Quarter: 2013Q4

REPORT INFORMATION
  Report Type: Spontaneous
  Country: US (occurrence: None)
  Receive Date: 20131224
  Receipt Date: 20131224
  Transmission Date: 20140711
  Serious: No
  Sender: FDA-Public Use
  Company Number: PHEH2013US020550

PATIENT
  Sex: Male

DRUGS (1)
  1. GILENYA (FINGOLIMOD) CAPSULE [Suspect]
     Indication: RELAPSING-REMITTING MULTIPLE SCLEROSIS
     Route: 048
     Dates: start: 20130923, end: 20130926

REACTIONS (4)
  - Hypersensitivity [None]
  - Swollen tongue [None]
  - Oedema mouth [None]
  - Pharyngeal oedema [None]
